FAERS Safety Report 10910602 (Version 2)
Quarter: 2016Q1

REPORT INFORMATION
  Report Type: Spontaneous
  Country: US (occurrence: US)
  Receive Date: 20150312
  Receipt Date: 20160322
  Transmission Date: 20160525
  Serious: No
  Sender: FDA-Public Use
  Company Number: US-SA-2015SA001921

PATIENT
  Age: 86 Year
  Sex: Female

DRUGS (2)
  1. NASACORT ALLERGY 24HR [Suspect]
     Active Substance: TRIAMCINOLONE ACETONIDE
     Indication: MULTIPLE ALLERGIES
     Dosage: 1 SPRAY IN EACH NOSE DAILY. DOSE:1 PUFF(S)
     Route: 045
     Dates: start: 201412
  2. NASACORT ALLERGY 24HR [Suspect]
     Active Substance: TRIAMCINOLONE ACETONIDE
     Indication: RHINITIS
     Dosage: 1 SPRAY IN EACH NOSE DAILY. DOSE:1 PUFF(S)
     Route: 045
     Dates: start: 201412

REACTIONS (3)
  - Drug intolerance [Unknown]
  - Arthritis [Unknown]
  - Underdose [Unknown]
